FAERS Safety Report 12921585 (Version 1)
Quarter: 2016Q4

REPORT INFORMATION
  Report Type: Spontaneous
  Country: US (occurrence: US)
  Receive Date: 20161108
  Receipt Date: 20161108
  Transmission Date: 20170207
  Serious: No
  Sender: FDA-Public Use
  Company Number: US-ELI_LILLY_AND_COMPANY-US201608005248

PATIENT
  Weight: 100 kg

DRUGS (3)
  1. CYMBALTA [Suspect]
     Active Substance: DULOXETINE HYDROCHLORIDE
     Indication: DEPRESSION
     Dosage: 60 MG, QD
     Route: 048
     Dates: start: 20120102, end: 20130418
  2. FLONASE                            /00908302/ [Concomitant]
     Active Substance: MOMETASONE FUROATE
     Indication: PAIN
     Dosage: 0.5 MG, UNKNOWN
     Route: 045
  3. DICLOFENAC SODIUM. [Concomitant]
     Active Substance: DICLOFENAC SODIUM
     Indication: PAIN
     Dosage: 75 MG, BID

REACTIONS (23)
  - Influenza like illness [Unknown]
  - Anxiety [Unknown]
  - Cough [Unknown]
  - Confusional state [Unknown]
  - Asthenia [Unknown]
  - Diplopia [Unknown]
  - Dysphoria [Unknown]
  - Vertigo [Unknown]
  - Drug withdrawal syndrome [Unknown]
  - Headache [Unknown]
  - Vision blurred [Unknown]
  - Nausea [Unknown]
  - Paraesthesia [Unknown]
  - Hyperhidrosis [Unknown]
  - Agitation [Unknown]
  - Affect lability [Unknown]
  - Fatigue [Unknown]
  - Lethargy [Unknown]
  - Insomnia [Unknown]
  - Dizziness [Unknown]
  - Pyrexia [Unknown]
  - Irritability [Unknown]
  - Hypomania [Unknown]
